FAERS Safety Report 8888492 (Version 6)
Quarter: 2013Q1

REPORT INFORMATION
  Report Type: Report from Study
  Country: AU (occurrence: AU)
  Receive Date: 20121106
  Receipt Date: 20130131
  Transmission Date: 20140127
  Serious: Yes (Hospitalization, Disabling, Other)
  Sender: FDA-Public Use
  Company Number: PHHY2012AU090325

PATIENT
  Age: 38 None
  Sex: Male

DRUGS (11)
  1. CLOZARIL [Suspect]
     Indication: SCHIZOAFFECTIVE DISORDER
     Dosage: 200 MG
     Dates: start: 20030311, end: 20121104
  2. CLOZARIL [Suspect]
     Dosage: UNK, CRUSHED CLOZARIL VIA NASOGASTRIC TUBE
  3. CLOZARIL [Suspect]
     Dosage: UNK UKN, INCREASED DOSE
     Route: 048
     Dates: start: 20121203
  4. VALPROATE SODIUM [Concomitant]
     Indication: AFFECTIVE DISORDER
     Dosage: 2500 MG, (1000MG, MANE/500MG NOCTE)
  5. GLICLAZIDE [Concomitant]
     Indication: DIABETES MELLITUS
     Dosage: 60 MG
  6. METFORMIN [Concomitant]
     Indication: DIABETES MELLITUS
     Dosage: 1 G, TID
  7. VENLAFAXINE [Concomitant]
     Indication: DEPRESSION
     Dosage: 150 MG, MANE
  8. FERROUS SULPHATE [Concomitant]
     Dosage: 325 MG, MANE
  9. SIMVASTATIN [Concomitant]
     Indication: BLOOD CHOLESTEROL INCREASED
     Dosage: 20 MG, NOCTE
  10. FRUSEMIDE [Concomitant]
     Indication: FLUID RETENTION
     Route: 042
  11. CHOLECALCIFEROL [Concomitant]
     Indication: VITAMIN D DECREASED
     Dosage: 25 MG, UNK

REACTIONS (18)
  - N-terminal prohormone brain natriuretic peptide increased [Unknown]
  - Loss of consciousness [Unknown]
  - Cardiac failure [Not Recovered/Not Resolved]
  - Respiratory failure [Recovering/Resolving]
  - Sepsis [Unknown]
  - Malaise [Not Recovered/Not Resolved]
  - Pyrexia [Not Recovered/Not Resolved]
  - Gastrointestinal hypomotility [Recovered/Resolved]
  - Sedation [Unknown]
  - Pneumonia [Recovering/Resolving]
  - Lower respiratory tract infection [Recovering/Resolving]
  - Pleural effusion [Unknown]
  - Fluid overload [Unknown]
  - Weight increased [Recovering/Resolving]
  - Antipsychotic drug level increased [Unknown]
  - Type 2 diabetes mellitus [Not Recovered/Not Resolved]
  - Red blood cell count abnormal [Unknown]
  - White blood cell count abnormal [Unknown]
